FAERS Safety Report 18276789 (Version 1)
Quarter: 2020Q3

REPORT INFORMATION
  Report Type: Spontaneous
  Country: US (occurrence: US)
  Receive Date: 20200916
  Receipt Date: 20200916
  Transmission Date: 20201103
  Serious: Yes (Other)
  Sender: FDA-Public Use
  Company Number: None

PATIENT
  Age: 82 Year
  Sex: Female
  Weight: 72.9 kg

DRUGS (12)
  1. LACTATED RINGERS SOLUTION [Concomitant]
     Active Substance: CALCIUM CHLORIDE\POTASSIUM CHLORIDE\SODIUM CHLORIDE\SODIUM LACTATE
     Dates: start: 20200913, end: 20200914
  2. DEXMEDETOMIDINE. [Concomitant]
     Active Substance: DEXMEDETOMIDINE
     Dates: start: 20200913, end: 20200914
  3. ENOXAPARIN SQ Q12H [Concomitant]
     Dates: start: 20200913, end: 20200916
  4. METHYLPREDNISOLONE SODIUM SUCCINATE. [Concomitant]
     Active Substance: METHYLPREDNISOLONE SODIUM SUCCINATE
     Dates: start: 20200913, end: 20200916
  5. MIDAZOLAM IV [Concomitant]
     Dates: start: 20200913, end: 20200916
  6. PROPOFOL. [Concomitant]
     Active Substance: PROPOFOL
     Dates: start: 20200913, end: 20200916
  7. NOREPINEPHRINE. [Concomitant]
     Active Substance: NOREPINEPHRINE
     Dates: start: 20200913, end: 20200916
  8. DEXAMETHASONE 10MG IV ONE TIME [Concomitant]
     Dates: start: 20200913, end: 20200913
  9. FAMOTIDINE 20MG IV Q12H [Concomitant]
     Dates: start: 20200913, end: 20200916
  10. FENTANYL IV DRIP [Concomitant]
     Dates: start: 20200913, end: 20200916
  11. REMDESIVIR. [Suspect]
     Active Substance: REMDESIVIR
     Indication: COVID-19
     Dosage: ?          OTHER FREQUENCY:ONE TIME;?
     Route: 040
  12. KETAMINE [Concomitant]
     Active Substance: KETAMINE
     Dates: start: 20200913, end: 20200913

REACTIONS (3)
  - Alanine aminotransferase increased [None]
  - Aspartate aminotransferase increased [None]
  - Acute respiratory distress syndrome [None]

NARRATIVE: CASE EVENT DATE: 20200914
